FAERS Safety Report 8788568 (Version 2)
Quarter: 2012Q4

REPORT INFORMATION
  Report Type: 
  Country: US (occurrence: US)
  Receive Date: 20120914
  Receipt Date: 20121214
  Transmission Date: 20130627
  Serious: No
  Sender: FDA-Public Use
  Company Number: US-VERTEX PHARMACEUTICAL INC.-2012-019765

PATIENT
  Age: 60 Year
  Sex: Male

DRUGS (3)
  1. VX-950 (TELAPREVIR) [Suspect]
     Indication: HEPATITIS C
     Dosage: UNK
     Dates: start: 20120625, end: 20120825
  2. PEGASYS [Suspect]
     Indication: HEPATITIS C
     Dosage: UNK
     Dates: start: 20120625, end: 20120825
  3. RIBAPAK [Concomitant]
     Indication: HEPATITIS C
     Dosage: UNK
     Dates: start: 20120625, end: 20120825

REACTIONS (11)
  - Rib fracture [Not Recovered/Not Resolved]
  - Insomnia [Unknown]
  - Emphysema [Not Recovered/Not Resolved]
  - Injection site pain [Unknown]
  - Hypoaesthesia [Not Recovered/Not Resolved]
  - Pollakiuria [Not Recovered/Not Resolved]
  - Decreased appetite [Unknown]
  - Hyperhidrosis [Not Recovered/Not Resolved]
  - Fatigue [Unknown]
  - Drug ineffective [Not Recovered/Not Resolved]
  - Nausea [Not Recovered/Not Resolved]
